FAERS Safety Report 18219308 (Version 2)
Quarter: 2020Q3

REPORT INFORMATION
  Report Type: Spontaneous
  Country: TN (occurrence: TN)
  Receive Date: 20200901
  Receipt Date: 20200907
  Transmission Date: 20201103
  Serious: Yes (Death, Life-Threatening, Hospitalization, Other)
  Sender: FDA-Public Use
  Company Number: TN-SA-2020SA233111

PATIENT

DRUGS (2)
  1. GLIMEPIRIDE. [Suspect]
     Active Substance: GLIMEPIRIDE
     Indication: HYPERGLYCAEMIA
     Dosage: 1 MG, QD
     Dates: start: 2016
  2. METFORMIN [Concomitant]
     Active Substance: METFORMIN HYDROCHLORIDE
     Indication: STEROID DIABETES
     Dosage: UNK
     Dates: start: 2015

REACTIONS (16)
  - Skin lesion [Fatal]
  - Oral mucosal blistering [Fatal]
  - Rash pruritic [Fatal]
  - Multiple organ dysfunction syndrome [Fatal]
  - Toxic epidermal necrolysis [Fatal]
  - Pyrexia [Fatal]
  - Disorientation [Fatal]
  - Anuria [Fatal]
  - Blister [Fatal]
  - Acute respiratory failure [Fatal]
  - Hepatocellular injury [Fatal]
  - Condition aggravated [Fatal]
  - Dyspnoea [Fatal]
  - Rash [Fatal]
  - Mucosal erosion [Fatal]
  - Acute kidney injury [Fatal]

NARRATIVE: CASE EVENT DATE: 2016
